FAERS Safety Report 8201329-1 (Version None)
Quarter: 2012Q1

REPORT INFORMATION
  Report Type: 
  Country: None (occurrence: None)
  Receive Date: 20120312
  Receipt Date: 20120308
  Transmission Date: 20120608
  Serious: Yes (Death, Other)
  Sender: FDA-Public Use
  Company Number: PHHY2012BR020570

PATIENT
  Age: 61 Year
  Sex: Male

DRUGS (1)
  1. FORMOTEROL FUMARATE [Suspect]
     Dosage: 12/400 MCG

REACTIONS (2)
  - INFARCTION [None]
  - DEATH [None]
